FAERS Safety Report 11597939 (Version 1)
Quarter: 2015Q4

REPORT INFORMATION
  Report Type: Spontaneous
  Country: US (occurrence: US)
  Receive Date: 20151006
  Receipt Date: 20151006
  Transmission Date: 20160304
  Serious: No
  Sender: FDA-Public Use
  Company Number: US-ROCHE-1413765

PATIENT
  Sex: Female

DRUGS (2)
  1. ERIVEDGE [Suspect]
     Active Substance: VISMODEGIB
     Indication: EAR NEOPLASM MALIGNANT
     Route: 048
     Dates: start: 20140509
  2. ERIVEDGE [Suspect]
     Active Substance: VISMODEGIB
     Indication: BASAL CELL CARCINOMA

REACTIONS (9)
  - Arthralgia [Unknown]
  - Dysgeusia [Unknown]
  - Ageusia [Unknown]
  - Pain in extremity [Unknown]
  - Bone pain [Unknown]
  - Photophobia [Unknown]
  - Decreased appetite [Unknown]
  - Alopecia [Unknown]
  - Photosensitivity reaction [Unknown]
